FAERS Safety Report 6357810-3 (Version None)
Quarter: 2009Q3

REPORT INFORMATION
  Report Type: 
  Country: None (occurrence: None)
  Receive Date: 20090911
  Receipt Date: 20090827
  Transmission Date: 20100115
  Serious: Yes (Other)
  Sender: FDA-Public Use
  Company Number: A-CH2009-27195

PATIENT
  Age: 39 Year
  Sex: Female

DRUGS (3)
  1. TRACLEER [Suspect]
     Indication: RAYNAUD'S PHENOMENON
     Dosage: ORAL
     Route: 048
  2. MYCOPHENOLATE MOFETIL [Concomitant]
  3. CORTICOSTEROIDS [Concomitant]

REACTIONS (3)
  - ABORTION INDUCED [None]
  - MATERNAL DRUGS AFFECTING FOETUS [None]
  - TWIN PREGNANCY [None]
